FAERS Safety Report 9917262 (Version 1)
Quarter: 2014Q1

REPORT INFORMATION
  Report Type: Spontaneous
  Country: US (occurrence: US)
  Receive Date: 20140221
  Receipt Date: 20140221
  Transmission Date: 20141002
  Serious: Yes (Hospitalization)
  Sender: FDA-Public Use
  Company Number: US-ROXANE LABORATORIES, INC.-2014-RO-00244RO

PATIENT
  Age: 62 Year
  Sex: Female

DRUGS (2)
  1. PREDNISONE [Suspect]
     Indication: IDIOPATHIC PULMONARY FIBROSIS
     Dosage: 80 MG
     Dates: start: 20110413, end: 20121212
  2. ACETYLCYSTEINE [Concomitant]
     Indication: IDIOPATHIC PULMONARY FIBROSIS

REACTIONS (16)
  - Dizziness postural [Unknown]
  - Orthostatic hypotension [Unknown]
  - Ocular hyperaemia [Unknown]
  - Sleep disorder [Unknown]
  - Social avoidant behaviour [Unknown]
  - Contusion [Unknown]
  - Muscle spasms [Unknown]
  - Melaena [Unknown]
  - Weight increased [Unknown]
  - Swelling face [Unknown]
  - Mania [Unknown]
  - Tremor [Unknown]
  - Sensitivity of teeth [Unknown]
  - Alopecia [Unknown]
  - Memory impairment [Unknown]
  - Flushing [Unknown]
